FAERS Safety Report 6220834-0 (Version None)
Quarter: 2009Q2

REPORT INFORMATION
  Report Type: 
  Country: None (occurrence: None)
  Receive Date: 20090610
  Receipt Date: 20090601
  Transmission Date: 20091009
  Serious: Yes (Other)
  Sender: FDA-Public Use
  Company Number: US-JNJFOC-20081201229

PATIENT
  Sex: Female
  Weight: 101.61 kg

DRUGS (2)
  1. REMICADE [Suspect]
     Indication: CROHN'S DISEASE
     Route: 042
  2. MULTI-VITAMIN [Concomitant]

REACTIONS (2)
  - AMNIOTIC FLUID INDEX ABNORMAL [None]
  - DRUG EXPOSURE DURING PREGNANCY [None]
